FAERS Safety Report 7962398-7 (Version None)
Quarter: 2011Q4

REPORT INFORMATION
  Report Type: 
  Country: None (occurrence: None)
  Receive Date: 20111206
  Receipt Date: 20111120
  Transmission Date: 20120403
  Serious: Yes (Hospitalization)
  Sender: FDA-Public Use
  Company Number: UTC-012606

PATIENT
  Age: 57 Year
  Sex: Female
  Weight: 105.9 kg

DRUGS (4)
  1. REVATIO [Concomitant]
  2. COUMADIN [Concomitant]
  3. REMODULIN [Suspect]
     Indication: PULMONARY ARTERIAL HYPERTENSION
     Dosage: 14.4 UG/KG (0.01 UG/KG,1 IN 1 MIN),SUBCUTANEOUS
     Route: 058
     Dates: start: 20110628
  4. TRACLEER [Concomitant]

REACTIONS (2)
  - INFUSION SITE ABSCESS [None]
  - INFUSION SITE CELLULITIS [None]
